FAERS Safety Report 6347174-3 (Version None)
Quarter: 2009Q3

REPORT INFORMATION
  Report Type: 
  Country: None (occurrence: None)
  Receive Date: 20090910
  Receipt Date: 20090902
  Transmission Date: 20100115
  Serious: Yes (Hospitalization, Other)
  Sender: FDA-Public Use
  Company Number: PHEH2007US12139

PATIENT
  Sex: Male

DRUGS (7)
  1. AREDIA [Suspect]
     Dosage: 90MG
  2. ZOMETA [Suspect]
     Dosage: MONTHLY
     Dates: end: 20060101
  3. DECADRON                                /CAN/ [Suspect]
  4. CHEMOTHERAPEUTICS NOS [Concomitant]
  5. THALIDOMIDE [Concomitant]
  6. STEROIDS NOS [Concomitant]
  7. ARANESP [Concomitant]

REACTIONS (26)
  - ANXIETY [None]
  - ASTHENIA [None]
  - ATELECTASIS [None]
  - CARDIOMEGALY [None]
  - CELLULITIS [None]
  - DEFORMITY [None]
  - DYSPNOEA [None]
  - EMOTIONAL DISTRESS [None]
  - HYPOAESTHESIA [None]
  - HYPOKALAEMIA [None]
  - HYPOXIA [None]
  - INFECTION [None]
  - MALNUTRITION [None]
  - MENTAL STATUS CHANGES [None]
  - MULTIPLE MYELOMA [None]
  - NEUROPATHY PERIPHERAL [None]
  - NEUTROPENIC SEPSIS [None]
  - OSTEONECROSIS [None]
  - PAIN [None]
  - PANCYTOPENIA [None]
  - POLLAKIURIA [None]
  - PSEUDOMONAL BACTERAEMIA [None]
  - RENAL FAILURE [None]
  - SINUS TACHYCARDIA [None]
  - SPINAL OSTEOARTHRITIS [None]
  - TOOTH EXTRACTION [None]
